FAERS Safety Report 12185444 (Version 1)
Quarter: 2016Q1

REPORT INFORMATION
  Report Type: Report from Study
  Country: US (occurrence: US)
  Receive Date: 20160316
  Receipt Date: 20160316
  Transmission Date: 20160526
  Serious: No
  Sender: FDA-Public Use
  Company Number: US-GREER LABORATORIES, INC.-1049201

PATIENT
  Age: 3 Year
  Sex: Female

DRUGS (10)
  1. POSITIVE SKIN TEST CONTROL - HISTAMINE [Suspect]
     Active Substance: HISTAMINE
     Route: 023
     Dates: start: 20160206
  2. ALTERNARIA ALTERNATA. [Suspect]
     Active Substance: ALTERNARIA ALTERNATA
     Route: 023
     Dates: start: 20160206
  3. STANDARDIZED CAT PELT [Suspect]
     Active Substance: FELIS CATUS DANDER
     Route: 023
     Dates: start: 20160206
  4. ANIMAL ALLERGENS, AP DOG HAIR AND DANDER CANIS SPP [Suspect]
     Active Substance: CANIS LUPUS FAMILIARIS DANDER\CANIS LUPUS FAMILIARIS HAIR
     Route: 023
     Dates: start: 20160206
  5. STANDARDIZED MITE DERMATOPHAGOIDES PTERONYSSINUS [Suspect]
     Active Substance: DERMATOPHAGOIDES PTERONYSSINUS
     Route: 023
     Dates: start: 20160206
  6. STANDARDIZED GRASS POLLEN, GRASS MIX 7 [Suspect]
     Active Substance: AGROSTIS GIGANTEA POLLEN\ANTHOXANTHUM ODORATUM POLLEN\DACTYLIS GLOMERATA POLLEN\FESTUCA PRATENSIS POLLEN\LOLIUM PERENNE POLLEN\PHLEUM PRATENSE POLLEN\POA PRATENSIS POLLEN
     Route: 023
     Dates: start: 20160206
  7. INSECTS (WHOLE BODY) COCKROACH MIX [Suspect]
     Active Substance: BLATELLA GERMANICA\PERIPLANETA AMERICANA
     Route: 023
     Dates: start: 20160206
  8. POLLENS - WEEDS, GIANT, SHORT, WESTERN RAGWEED MIX [Suspect]
     Active Substance: AMBROSIA ARTEMISIIFOLIA POLLEN\AMBROSIA PSILOSTACHYA POLLEN\AMBROSIA TRIFIDA POLLEN
     Route: 023
     Dates: start: 20160206
  9. POLLENS - TREES, OAK MIX [Suspect]
     Active Substance: QUERCUS ALBA POLLEN\QUERCUS RUBRA POLLEN\QUERCUS VIRGINIANA POLLEN
     Route: 023
     Dates: start: 20160206
  10. COCA-GLYCERINE CONTROL [Suspect]
     Active Substance: GLYCERIN
     Route: 023
     Dates: start: 20160206

REACTIONS (1)
  - Urticaria [Recovered/Resolved]

NARRATIVE: CASE EVENT DATE: 20160206
